FAERS Safety Report 21993078 (Version 2)
Quarter: 2023Q2

REPORT INFORMATION
  Report Type: Report from Study
  Country: US (occurrence: US)
  Receive Date: 20230215
  Receipt Date: 20230508
  Transmission Date: 20230722
  Serious: Yes (Other)
  Sender: FDA-Public Use
  Company Number: US-ABBVIE-4307611

PATIENT
  Sex: Female

DRUGS (4)
  1. HUMIRA [Suspect]
     Active Substance: ADALIMUMAB
     Indication: Crohn^s disease
     Dosage: CITRATE FREE, FORM STRENGTH 40 MILLIGRAM
     Route: 058
  2. HUMIRA [Suspect]
     Active Substance: ADALIMUMAB
     Dosage: CITRATE FREE, FORM STRENGTH 40 MILLIGRAM
     Route: 058
     Dates: start: 20220224
  3. COLESTIPOL [Concomitant]
     Active Substance: COLESTIPOL
     Indication: Product used for unknown indication
  4. Amytrypatline [Concomitant]
     Indication: Product used for unknown indication

REACTIONS (5)
  - Small intestinal obstruction [Unknown]
  - Therapeutic product effect decreased [Unknown]
  - Drug level decreased [Unknown]
  - Constipation [Not Recovered/Not Resolved]
  - Crohn^s disease [Not Recovered/Not Resolved]
